FAERS Safety Report 10867557 (Version 1)
Quarter: 2015Q1

REPORT INFORMATION
  Report Type: Spontaneous
  Country: US (occurrence: US)
  Receive Date: 20150225
  Receipt Date: 20150225
  Transmission Date: 20150721
  Serious: Yes (Other)
  Sender: FDA-Public Use
  Company Number: US-MYLANLABS-2015M1006039

PATIENT

DRUGS (1)
  1. LEVOFLOXACIN. [Suspect]
     Active Substance: LEVOFLOXACIN
     Route: 065

REACTIONS (2)
  - Stevens-Johnson syndrome [Unknown]
  - Vanishing bile duct syndrome [Recovered/Resolved]
